FAERS Safety Report 19651460 (Version 1)
Quarter: 2021Q3

REPORT INFORMATION
  Report Type: Spontaneous
  Country: US (occurrence: US)
  Receive Date: 20210803
  Receipt Date: 20210803
  Transmission Date: 20211014
  Serious: No
  Sender: FDA-Public Use
  Company Number: None

PATIENT
  Age: 59 Year
  Sex: Female
  Weight: 47.25 kg

DRUGS (1)
  1. ESTRADIOL VAGINAL INSERT USP [Suspect]
     Active Substance: ESTRADIOL
     Indication: VULVOVAGINAL DRYNESS
     Route: 067
     Dates: start: 20210304, end: 20210312

REACTIONS (3)
  - Rash [None]
  - Pain of skin [None]
  - Genital rash [None]

NARRATIVE: CASE EVENT DATE: 20210304
